FAERS Safety Report 5522397-1 (Version None)
Quarter: 2007Q4

REPORT INFORMATION
  Report Type: 
  Country: None (occurrence: None)
  Receive Date: 20071120
  Receipt Date: 20071109
  Transmission Date: 20080405
  Serious: Yes (Hospitalization)
  Sender: FDA-Public Use
  Company Number: RO-PFIZER INC-2007089930

PATIENT
  Sex: Female
  Weight: 40 kg

DRUGS (4)
  1. ZMAX [Suspect]
     Indication: TRACHEOBRONCHITIS
     Route: 048
     Dates: start: 20071025, end: 20071025
  2. CARBAMAZEPINE [Concomitant]
  3. PHENOBARBITAL TAB [Concomitant]
  4. VALPROIC ACID [Concomitant]

REACTIONS (1)
  - COMA [None]
